FAERS Safety Report 4610971-6 (Version None)
Quarter: 2005Q1

REPORT INFORMATION
  Report Type: 
  Country: None (occurrence: None)
  Receive Date: 20050317
  Receipt Date: 20050119
  Transmission Date: 20050727
  Serious: Yes (Hospitalization, Disabling, Other)
  Sender: FDA-Public Use
  Company Number: US-BRISTOL-MYERS SQUIBB COMPANY-12833794

PATIENT
  Age: 39 Year
  Sex: Female

DRUGS (6)
  1. TAXOL [Suspect]
     Indication: BREAST CANCER
     Dates: end: 20011001
  2. CYTOXAN [Suspect]
     Indication: BREAST CANCER
     Dates: end: 20011001
  3. ADRIAMYCIN PFS [Suspect]
     Indication: BREAST CANCER
     Dates: end: 20011001
  4. LORTAB [Concomitant]
     Indication: PAIN
     Route: 048
  5. ELAVIL [Concomitant]
  6. PERCOCET [Concomitant]
     Indication: PAIN

REACTIONS (11)
  - ANGIOTENSIN CONVERTING ENZYME INCREASED [None]
  - ASEPTIC NECROSIS BONE [None]
  - DEPRESSED MOOD [None]
  - FALL [None]
  - HERPES ZOSTER [None]
  - MENINGITIS ASEPTIC [None]
  - MYOPATHY [None]
  - NON-CARDIAC CHEST PAIN [None]
  - OEDEMA PERIPHERAL [None]
  - PAIN IN EXTREMITY [None]
  - PERIPHERAL SENSORY NEUROPATHY [None]
